FAERS Safety Report 11572121 (Version 4)
Quarter: 2016Q4

REPORT INFORMATION
  Report Type: Spontaneous
  Country: US (occurrence: US)
  Receive Date: 20150929
  Receipt Date: 20161209
  Transmission Date: 20170206
  Serious: Yes (Other)
  Sender: FDA-Public Use
  Company Number: US-SA-2015SA137646

PATIENT
  Age: 53 Year
  Sex: Female
  Weight: 78.9 kg

DRUGS (10)
  1. BOTOX [Concomitant]
     Active Substance: ONABOTULINUMTOXINA
  2. METRONIDAZOLE. [Concomitant]
     Active Substance: METRONIDAZOLE
  3. AUBAGIO [Suspect]
     Active Substance: TERIFLUNOMIDE
     Indication: RELAPSING-REMITTING MULTIPLE SCLEROSIS
     Route: 048
     Dates: start: 20150826
  4. IMITREX [Concomitant]
     Active Substance: SUMATRIPTAN SUCCINATE
  5. BIOTIN [Concomitant]
     Active Substance: BIOTIN
  6. TOPAMAX [Concomitant]
     Active Substance: TOPIRAMATE
  7. IBUPROFEN. [Suspect]
     Active Substance: IBUPROFEN
     Route: 065
  8. LYRICA [Concomitant]
     Active Substance: PREGABALIN
     Route: 048
  9. VITAMIN D [Concomitant]
     Active Substance: CHOLECALCIFEROL
     Route: 048
  10. TRAMADOL. [Concomitant]
     Active Substance: TRAMADOL

REACTIONS (7)
  - Haematuria [Recovered/Resolved]
  - Renal cancer [Recovered/Resolved]
  - Flushing [Recovered/Resolved]
  - Abdominal discomfort [Recovered/Resolved]
  - Temporomandibular joint syndrome [Recovering/Resolving]
  - Dizziness [Unknown]
  - Headache [Recovered/Resolved]

NARRATIVE: CASE EVENT DATE: 201509
